FAERS Safety Report 7374171-1 (Version None)
Quarter: 2011Q1

REPORT INFORMATION
  Report Type: 
  Country: None (occurrence: None)
  Receive Date: 20110325
  Receipt Date: 20110314
  Transmission Date: 20110831
  Serious: Yes (Hospitalization)
  Sender: FDA-Public Use
  Company Number: US-JNJFOC-20110306587

PATIENT
  Sex: Female
  Weight: 91.63 kg

DRUGS (13)
  1. METHOTREXATE [Concomitant]
     Indication: RHEUMATOID ARTHRITIS
     Route: 048
  2. DIAZEPAM [Concomitant]
     Indication: ANXIETY
     Route: 048
  3. LORAZEPAM [Concomitant]
     Indication: ANXIETY
     Route: 048
  4. HYDROCHLOROTHIAZIDE [Concomitant]
     Indication: HYPERTENSION
     Route: 048
  5. PHENERGAN [Concomitant]
     Indication: NAUSEA
     Route: 048
  6. HYDROXYCHLOROQUINE SULFATE [Concomitant]
     Indication: IMMUNE SYSTEM DISORDER
     Route: 048
  7. CYMBALTA [Concomitant]
     Indication: DEPRESSION
     Route: 048
  8. NEURONTIN [Concomitant]
     Indication: PAIN
     Route: 048
  9. ZOFRAN [Concomitant]
     Indication: NAUSEA
     Route: 048
  10. LISINOPRIL [Concomitant]
     Indication: HYPERTENSION
     Route: 048
  11. SEROQUEL [Concomitant]
     Indication: DEPRESSION
     Route: 048
  12. SINGULAIR [Concomitant]
     Indication: ASTHMA
     Route: 048
  13. SIMPONI [Suspect]
     Indication: IMMUNE SYSTEM DISORDER
     Route: 058

REACTIONS (1)
  - MENINGITIS VIRAL [None]
